FAERS Safety Report 7524703-5 (Version None)
Quarter: 2011Q2

REPORT INFORMATION
  Report Type: 
  Country: None (occurrence: None)
  Receive Date: 20110606
  Receipt Date: 20110525
  Transmission Date: 20111010
  Serious: Yes (Death, Hospitalization)
  Sender: FDA-Public Use
  Company Number: ZA-PFIZER INC-2011120829

PATIENT
  Age: 11 Year
  Sex: Male

DRUGS (9)
  1. VORICONAZOLE [Suspect]
  2. AMIKACIN [Suspect]
     Indication: LOWER RESPIRATORY TRACT INFECTION
  3. PIPERACILLIN [Suspect]
     Indication: LOWER RESPIRATORY TRACT INFECTION
  4. MEROPENEM [Suspect]
  5. LINEZOLID [Suspect]
  6. DORIPENEM MONOHYDRATE [Suspect]
     Dosage: 400 MG, 3X/DAY
     Route: 041
  7. FLUCONAZOLE [Suspect]
  8. CLOXACILLIN SODIUM [Suspect]
  9. VANCOMYCIN HCL [Suspect]

REACTIONS (5)
  - LOWER RESPIRATORY TRACT INFECTION [None]
  - LABORATORY TEST ABNORMAL [None]
  - DRUG ADMINISTERED TO PATIENT OF INAPPROPRIATE AGE [None]
  - DEATH [None]
  - RENAL IMPAIRMENT [None]
